FAERS Safety Report 7874064-7 (Version None)
Quarter: 2011Q4

REPORT INFORMATION
  Report Type: 
  Country: None (occurrence: None)
  Receive Date: 20111017
  Receipt Date: 20110328
  Transmission Date: 20120403
  Serious: Yes (Hospitalization)
  Sender: FDA-Public Use
  Company Number: 2011S1000168(0)

PATIENT
  Sex: Female

DRUGS (14)
  1. DILTIAZEM [Concomitant]
  2. DIGOXIN [Concomitant]
  3. LISINOPRIL [Concomitant]
  4. TAMOXIFEN CITRATE [Concomitant]
  5. OMEPRAZOLE [Concomitant]
  6. ATORVASTATIN CALCIUM [Suspect]
     Indication: ARTERIAL OCCLUSIVE DISEASE
     Dosage: 40 MG, 1 IN 1 D
     Dates: start: 20060101
  7. AMILORIDE (AMILORIDE) [Concomitant]
  8. LORATADINE [Concomitant]
  9. ASPIRIN [Concomitant]
  10. WARFARIN SODIUM [Concomitant]
  11. ACETAMINOPHEN [Suspect]
     Indication: PAIN
  12. SOTALOL HCL [Concomitant]
  13. WARFARIN SODIUM [Concomitant]
  14. DARVOCET-N 100 [Suspect]
     Dosage: ORAL
     Route: 048

REACTIONS (2)
  - DRUG HYPERSENSITIVITY [None]
  - TACHYCARDIA [None]
